FAERS Safety Report 5760800-2 (Version None)
Quarter: 2008Q2

REPORT INFORMATION
  Report Type: 
  Country: None (occurrence: None)
  Receive Date: 20080606
  Receipt Date: 20080523
  Transmission Date: 20081010
  Serious: Yes (Hospitalization)
  Sender: FDA-Public Use
  Company Number: GB-JNJFOC-20080107322

PATIENT
  Sex: Male

DRUGS (1)
  1. TRINESSA [Suspect]
     Indication: DRUG EXPOSURE DURING PREGNANCY

REACTIONS (4)
  - DEVELOPMENTAL DELAY [None]
  - GENERAL PHYSICAL CONDITION ABNORMAL [None]
  - HYDROCEPHALUS [None]
  - PREMATURE BABY [None]
